FAERS Safety Report 25469875 (Version 1)
Quarter: 2025Q2

REPORT INFORMATION
  Report Type: Spontaneous
  Country: PK (occurrence: PK)
  Receive Date: 20250623
  Receipt Date: 20250623
  Transmission Date: 20250716
  Serious: Yes (Other)
  Sender: PFIZER
  Company Number: PK-PFIZER INC-PV202400009136

PATIENT
  Age: 25 Year
  Sex: Male
  Weight: 78 kg

DRUGS (9)
  1. IXIFI [Suspect]
     Active Substance: INFLIXIMAB-QBTX
     Indication: Psoriatic arthropathy
     Route: 042
  2. IXIFI [Suspect]
     Active Substance: INFLIXIMAB-QBTX
     Indication: Ankylosing spondylitis
     Route: 042
     Dates: start: 202401
  3. IXIFI [Suspect]
     Active Substance: INFLIXIMAB-QBTX
     Indication: Psoriasis
     Route: 042
     Dates: start: 202403
  4. IXIFI [Suspect]
     Active Substance: INFLIXIMAB-QBTX
     Indication: Uveitis
  5. DURAGESIC [Concomitant]
     Active Substance: FENTANYL
     Dosage: 3X/DAY (1+1+1)
  6. EZIUM [ESOMEPRAZOLE] [Concomitant]
     Dosage: 40 MG, 1X/DAY (1+0+0)
  7. INH [Concomitant]
     Active Substance: ISONIAZID
     Dosage: 300 MG, 1X/DAY (1+0+0)
  8. NAPROXEN [Concomitant]
     Active Substance: NAPROXEN
     Dosage: 250 MG, 2X/DAY (1-0-1)
  9. NEXIUM I.V. [Concomitant]
     Active Substance: ESOMEPRAZOLE SODIUM
     Dosage: 40 MG, 1X/DAY (1+0+0)

REACTIONS (9)
  - Blindness unilateral [Unknown]
  - Uveitis [Unknown]
  - Eye swelling [Unknown]
  - C-reactive protein increased [Unknown]
  - Arthralgia [Unknown]
  - Eye infection [Unknown]
  - Synovitis [Unknown]
  - Off label use [Unknown]
  - Rash [Unknown]
